FAERS Safety Report 16111169 (Version 1)
Quarter: 2019Q1

REPORT INFORMATION
  Report Type: Spontaneous
  Country: US (occurrence: US)
  Receive Date: 20190325
  Receipt Date: 20190325
  Transmission Date: 20190418
  Serious: Yes (Other)
  Sender: FDA-Public Use
  Company Number: US-ROCHE-2285666

PATIENT
  Sex: Male
  Weight: 87.5 kg

DRUGS (29)
  1. GOCOVRI [Suspect]
     Active Substance: AMANTADINE
     Dosage: AT NIGHT
     Route: 048
     Dates: start: 20190206
  2. CEPHALEXIN. [Concomitant]
     Active Substance: CEPHALEXIN
  3. VITAMIN D3 [Concomitant]
     Active Substance: CHOLECALCIFEROL
     Indication: NUTRITIONAL SUPPLEMENTATION
  4. MELATONIN [Concomitant]
     Active Substance: MELATONIN
  5. MIRALAX [Concomitant]
     Active Substance: POLYETHYLENE GLYCOL 3350
  6. GOCOVRI [Suspect]
     Active Substance: AMANTADINE
     Indication: PRODUCT USED FOR UNKNOWN INDICATION
     Dosage: AT BEDTIME
     Route: 048
     Dates: start: 201802, end: 2018
  7. SINEMET [Concomitant]
     Active Substance: CARBIDOPA\LEVODOPA
     Dosage: 25/100 MG
     Route: 065
  8. SIMVASTATIN. [Concomitant]
     Active Substance: SIMVASTATIN
  9. DULOXETINA [Concomitant]
     Active Substance: DULOXETINE
     Route: 065
  10. VALSARTAN. [Concomitant]
     Active Substance: VALSARTAN
     Route: 065
     Dates: end: 2018
  11. GOCOVRI [Suspect]
     Active Substance: AMANTADINE
     Dosage: AT NIGHT
     Route: 048
     Dates: start: 20180615
  12. NORVASC [Suspect]
     Active Substance: AMLODIPINE BESYLATE
     Indication: BLOOD PRESSURE INCREASED
     Route: 065
     Dates: start: 2018
  13. KLONOPIN [Suspect]
     Active Substance: CLONAZEPAM
     Route: 065
     Dates: start: 2018, end: 20190205
  14. KLONOPIN [Suspect]
     Active Substance: CLONAZEPAM
     Route: 065
  15. BENICAR [Concomitant]
     Active Substance: OLMESARTAN MEDOXOMIL
     Route: 065
     Dates: start: 2018
  16. HYDROCHLOROTHIAZIDE. [Concomitant]
     Active Substance: HYDROCHLOROTHIAZIDE
     Dosage: ONGOING: UNKNOWN
     Route: 065
     Dates: start: 2019
  17. MYRBETRIQ [Concomitant]
     Active Substance: MIRABEGRON
  18. FISH OIL [Concomitant]
     Active Substance: FISH OIL
     Indication: NUTRITIONAL SUPPLEMENTATION
  19. KLONOPIN [Suspect]
     Active Substance: CLONAZEPAM
     Route: 065
     Dates: start: 20190206
  20. RYTARY [Concomitant]
     Active Substance: CARBIDOPA\LEVODOPA
     Dosage: 36.25/145 MG
     Route: 065
  21. LINZESS [Concomitant]
     Active Substance: LINACLOTIDE
  22. BABY ASPIRIN [Concomitant]
     Active Substance: ASPIRIN
     Route: 065
  23. COENZYME Q10 [Concomitant]
     Active Substance: UBIDECARENONE
     Indication: NUTRITIONAL SUPPLEMENTATION
  24. KLONOPIN [Suspect]
     Active Substance: CLONAZEPAM
     Indication: PRODUCT USED FOR UNKNOWN INDICATION
     Route: 065
     Dates: end: 2018
  25. VESICARE [Concomitant]
     Active Substance: SOLIFENACIN SUCCINATE
  26. NEXIUM [Concomitant]
     Active Substance: ESOMEPRAZOLE MAGNESIUM
  27. GOCOVRI [Suspect]
     Active Substance: AMANTADINE
     Dosage: AT BEDTIME
     Route: 048
     Dates: start: 2018, end: 20190205
  28. METOPROLOL. [Concomitant]
     Active Substance: METOPROLOL
     Route: 065
     Dates: start: 2018
  29. AZILECT [Concomitant]
     Active Substance: RASAGILINE MESYLATE

REACTIONS (14)
  - Hallucinations, mixed [Recovered/Resolved]
  - Asthenia [Unknown]
  - Balance disorder [Unknown]
  - Peripheral swelling [Unknown]
  - Transient ischaemic attack [Unknown]
  - Fluid retention [Unknown]
  - Skin abrasion [Unknown]
  - Visual impairment [Unknown]
  - Hypertension [Unknown]
  - Gait disturbance [Unknown]
  - Cerebral haemorrhage [Unknown]
  - Eye movement disorder [Unknown]
  - Fall [Not Recovered/Not Resolved]
  - Contusion [Unknown]

NARRATIVE: CASE EVENT DATE: 2018
